FAERS Safety Report 6494149-X (Version None)
Quarter: 2009Q4

REPORT INFORMATION
  Report Type: 
  Country: None (occurrence: None)
  Receive Date: 20091214
  Receipt Date: 20090112
  Transmission Date: 20100525
  Serious: No
  Sender: FDA-Public Use
  Company Number: US-BRISTOL-MYERS SQUIBB COMPANY-14466478

PATIENT
  Age: 39 Year
  Sex: Female
  Weight: 65 kg

DRUGS (2)
  1. ABILIFY [Suspect]
     Indication: HALLUCINATION, AUDITORY
     Dates: start: 20090108
  2. INSULIN HUMAN [Concomitant]
     Dosage: 1 DOSAGE FROM=75/25

REACTIONS (1)
  - HALLUCINATION, AUDITORY [None]
